FAERS Safety Report 7265536-7 (Version None)
Quarter: 2011Q1

REPORT INFORMATION
  Report Type: 
  Country: None (occurrence: None)
  Receive Date: 20110131
  Receipt Date: 20110128
  Transmission Date: 20110831
  Serious: Yes (Hospitalization)
  Sender: FDA-Public Use
  Company Number: CO-ROCHE-756010

PATIENT
  Sex: Female

DRUGS (5)
  1. PEGASYS [Suspect]
     Indication: HEPATITIS C
     Route: 058
     Dates: start: 20100507
  2. COPEGUS [Suspect]
     Indication: HEPATITIS C
     Route: 048
     Dates: start: 20100507
  3. TIROXINA SODICA [Concomitant]
     Indication: HYPOTHYROIDISM
     Dates: start: 20090101
  4. ACETAMINOPHEN [Concomitant]
     Indication: PAIN
     Route: 048
     Dates: start: 20100101
  5. RIBAVIRIN [Concomitant]
     Indication: ANTIVIRAL TREATMENT
     Route: 048
     Dates: start: 20100101

REACTIONS (1)
  - CHOLELITHIASIS [None]
